FAERS Safety Report 13937031 (Version 1)
Quarter: 2017Q3

REPORT INFORMATION
  Report Type: Spontaneous
  Country: GB (occurrence: GB)
  Receive Date: 20170905
  Receipt Date: 20170905
  Transmission Date: 20171127
  Serious: Yes (Other)
  Sender: FDA-Public Use
  Company Number: GB-SA-2017SA158783

PATIENT
  Age: 77 Year
  Sex: Female
  Weight: 48 kg

DRUGS (8)
  1. FERROUS FUMARATE [Concomitant]
     Active Substance: FERROUS FUMARATE
     Dosage: ADULT TREATMENT DOSE.
     Route: 065
     Dates: start: 20170411
  2. ZOPICLONE [Concomitant]
     Active Substance: ZOPICLONE
     Dosage: AT NIGHT.
     Route: 065
     Dates: start: 20160418
  3. DIAZEPAM. [Concomitant]
     Active Substance: DIAZEPAM
     Dosage: USE FOR SHORT PERIODS AT LOWEST DOSE THAT CAN C...
     Route: 065
     Dates: start: 20170523, end: 20170620
  4. SIMVASTATIN. [Concomitant]
     Active Substance: SIMVASTATIN
     Dosage: AT NIGHT.
     Route: 065
     Dates: start: 20160418
  5. CLOPIDOGREL BISULFATE. [Suspect]
     Active Substance: CLOPIDOGREL BISULFATE
     Indication: SUBARACHNOID HAEMORRHAGE
     Route: 048
  6. OMEPRAZOLE. [Concomitant]
     Active Substance: OMEPRAZOLE
     Route: 065
     Dates: start: 20160418
  7. FELODIPINE. [Concomitant]
     Active Substance: FELODIPINE
     Route: 065
     Dates: start: 20160624
  8. CLOPIDOGREL BISULFATE. [Suspect]
     Active Substance: CLOPIDOGREL BISULFATE
     Indication: SUBARACHNOID HAEMORRHAGE
     Route: 048

REACTIONS (2)
  - Hypergammaglobulinaemia benign monoclonal [Unknown]
  - Pancytopenia [Recovering/Resolving]
